FAERS Safety Report 10336127 (Version 2)
Quarter: 2014Q3

REPORT INFORMATION
  Report Type: Spontaneous
  Country: US (occurrence: US)
  Receive Date: 20140723
  Receipt Date: 20140723
  Transmission Date: 20150326
  Serious: No
  Sender: FDA-Public Use
  Company Number: US-UNITED THERAPEUTICS-UTC-047113

PATIENT
  Age: 57 Year
  Sex: Female
  Weight: 50.34 kg

DRUGS (1)
  1. REMODULIN [Suspect]
     Active Substance: TREPROSTINIL
     Dosage: 0.05 ?G/KG/MIN, CONTINUING
     Route: 058
     Dates: start: 20110217

REACTIONS (6)
  - Infusion site erythema [Unknown]
  - Infusion site infection [Unknown]
  - Infusion site swelling [Unknown]
  - Device dislocation [Unknown]
  - Injection site discharge [Unknown]
  - Infusion site pain [Unknown]

NARRATIVE: CASE EVENT DATE: 20140401
